FAERS Safety Report 4380628-8 (Version None)
Quarter: 2004Q2

REPORT INFORMATION
  Report Type: 
  Country: None (occurrence: None)
  Receive Date: 20040610
  Receipt Date: 20040317
  Transmission Date: 20050107
  Serious: Yes (Other)
  Sender: FDA-Public Use
  Company Number: A03200400839

PATIENT
  Age: 44 Year
  Sex: Male
  Weight: 125.6464 kg

DRUGS (5)
  1. ELOXATIN [Suspect]
     Indication: COLON CANCER
     Dosage: 85 MG/M2 Q2W - INTRAVENOUS NOS
     Route: 014
     Dates: start: 20040301, end: 20040301
  2. ELOXATIN [Suspect]
     Indication: METASTASES TO LUNG
     Dosage: 85 MG/M2 Q2W - INTRAVENOUS NOS
     Route: 014
     Dates: start: 20040301, end: 20040301
  3. FLUOROURACIL [Concomitant]
  4. LEUCOVORIN [Concomitant]
  5. DEXAMETHASONE TAB [Concomitant]

REACTIONS (6)
  - DYSPNOEA [None]
  - FLUSHING [None]
  - HYPERSENSITIVITY [None]
  - HYPERTENSION [None]
  - OXYGEN SATURATION DECREASED [None]
  - PRURITUS [None]
